FAERS Safety Report 8374664-4 (Version None)
Quarter: 2012Q2

REPORT INFORMATION
  Report Type: 
  Country: None (occurrence: None)
  Receive Date: 20120521
  Receipt Date: 20111007
  Transmission Date: 20120825
  Serious: No
  Sender: FDA-Public Use
  Company Number: US-ASTRAZENECA-2011SE60748

PATIENT
  Age: 72 Year
  Sex: Female
  Weight: 52.2 kg

DRUGS (7)
  1. BETAPACE [Concomitant]
  2. SPIRONOLACTONE [Concomitant]
  3. SYNTHROID [Concomitant]
  4. POTASSIUM CHLORIDE [Concomitant]
  5. PREMARIN [Concomitant]
  6. PRILOSEC OTC [Suspect]
     Route: 048
  7. LASIX [Concomitant]

REACTIONS (3)
  - BRONCHIECTASIS [None]
  - HYPERTENSION [None]
  - EMPHYSEMA [None]
